FAERS Safety Report 4315435-5 (Version None)
Quarter: 2004Q1

REPORT INFORMATION
  Report Type: 
  Country: None (occurrence: None)
  Receive Date: 20040309
  Receipt Date: 20040225
  Transmission Date: 20041129
  Serious: Yes (Life-Threatening)
  Sender: FDA-Public Use
  Company Number: 04P-163-0251498-00

PATIENT
  Age: 43 Year
  Sex: Female
  Weight: 88.2 kg

DRUGS (13)
  1. HUMIRA [Suspect]
     Indication: RHEUMATOID ARTHRITIS
     Dosage: 40 MG, 1 IN 2 WK, SUBCUTANEOUS
     Route: 058
     Dates: start: 20010326, end: 20040223
  2. METHOTREXATE [Concomitant]
  3. ACETAMINOPHEN [Concomitant]
  4. ZITHROMAX [Concomitant]
  5. DESONIDE [Concomitant]
  6. PSEUDOEPHEDRINE HYDROCHLORIDE [Concomitant]
  7. BISMUTH SUBSALICYLATE [Concomitant]
  8. LOPERAMIDE HYDROCHLORIDE [Concomitant]
  9. OMEPRAZOLE [Concomitant]
  10. METHYLPREDNISOLONE [Concomitant]
  11. LIDOCAINE [Concomitant]
  12. DEXAMETHASONE SODIUM PHOSPHATE [Concomitant]
  13. PREDNISONE [Concomitant]

REACTIONS (3)
  - OROPHARYNGEAL SWELLING [None]
  - PAPILLARY THYROID CANCER [None]
  - THYROID NEOPLASM [None]
